FAERS Safety Report 16424907 (Version 2)
Quarter: 2020Q1

REPORT INFORMATION
  Report Type: Spontaneous
  Country: US (occurrence: US)
  Receive Date: 20190613
  Receipt Date: 20200331
  Transmission Date: 20200409
  Serious: Yes (Other)
  Sender: FDA-Public Use
  Company Number: US-GILEAD-2019-0413087

PATIENT
  Age: 54 Year
  Sex: Male
  Weight: 83.45 kg

DRUGS (50)
  1. PREDNISONE. [Concomitant]
     Active Substance: PREDNISONE
  2. OXYCODONE [Concomitant]
     Active Substance: OXYCODONE
  3. PEPCID [Concomitant]
     Active Substance: FAMOTIDINE
  4. CROFELEMER [Concomitant]
     Active Substance: CROFELEMER
  5. ATORVASTATIN [Concomitant]
     Active Substance: ATORVASTATIN
  6. VIREAD [Suspect]
     Active Substance: TENOFOVIR DISOPROXIL FUMARATE
     Indication: HIV INFECTION
     Dosage: UNK
     Route: 048
     Dates: start: 2004, end: 2005
  7. OXYCODONE AND ACETAMINOPHEN [Concomitant]
     Active Substance: ACETAMINOPHEN\OXYCODONE HYDROCHLORIDE
  8. LEVOFLOXACIN. [Concomitant]
     Active Substance: LEVOFLOXACIN
  9. ATROVENT [Concomitant]
     Active Substance: IPRATROPIUM BROMIDE
  10. SINGULAIR [Concomitant]
     Active Substance: MONTELUKAST SODIUM
  11. MYTESI [Concomitant]
     Active Substance: CROFELEMER
  12. NYSTOP [Concomitant]
     Active Substance: NYSTATIN
  13. LOVENOX [Concomitant]
     Active Substance: ENOXAPARIN SODIUM
  14. SODIUM CHLORIDE. [Concomitant]
     Active Substance: SODIUM CHLORIDE
  15. AMMONIUM LACTATE. [Concomitant]
     Active Substance: AMMONIUM LACTATE
  16. TRUVADA [Suspect]
     Active Substance: EMTRICITABINE\TENOFOVIR DISOPROXIL FUMARATE
     Indication: HIV INFECTION
     Dosage: UNK
     Route: 048
     Dates: start: 2008, end: 2016
  17. ACETAMINOPHEN AND CODEINE [Concomitant]
     Active Substance: ACETAMINOPHEN\CODEINE PHOSPHATE
  18. PANTOPRAZOLE [Concomitant]
     Active Substance: PANTOPRAZOLE
  19. FERROUS SULFATE. [Concomitant]
     Active Substance: FERROUS SULFATE
  20. PREZISTA [Concomitant]
     Active Substance: DARUNAVIR ETHANOLATE
  21. SEROQUEL [Concomitant]
     Active Substance: QUETIAPINE FUMARATE
  22. KETOROLAC [Concomitant]
     Active Substance: KETOROLAC TROMETHAMINE
  23. LYRICA [Concomitant]
     Active Substance: PREGABALIN
  24. CLONAZEPAM. [Concomitant]
     Active Substance: CLONAZEPAM
  25. DIAZEPAM. [Concomitant]
     Active Substance: DIAZEPAM
  26. PORCINE-FASTACT [Concomitant]
  27. BISAC EVAC [Concomitant]
  28. AMOXICILLIN. [Concomitant]
     Active Substance: AMOXICILLIN
  29. SYNTHROID [Concomitant]
     Active Substance: LEVOTHYROXINE SODIUM
  30. VITAMINS NOS [Concomitant]
     Active Substance: VITAMINS
  31. TIVICAY [Concomitant]
     Active Substance: DOLUTEGRAVIR SODIUM
  32. PREGABALIN. [Concomitant]
     Active Substance: PREGABALIN
  33. QUETIAPINE. [Concomitant]
     Active Substance: QUETIAPINE
  34. TYLENOL [Concomitant]
     Active Substance: ACETAMINOPHEN
  35. MIDODRINE [Concomitant]
     Active Substance: MIDODRINE
  36. SENNOSIDES. [Concomitant]
     Active Substance: SENNOSIDES
  37. K-DUR [Concomitant]
     Active Substance: POTASSIUM CHLORIDE
  38. CYCLOBENZAPRINE. [Concomitant]
     Active Substance: CYCLOBENZAPRINE
  39. LIPITOR [Concomitant]
     Active Substance: ATORVASTATIN CALCIUM
  40. LOPERAMIDE [Concomitant]
     Active Substance: LOPERAMIDE
  41. ROCEPHIN [Concomitant]
     Active Substance: CEFTRIAXONE SODIUM
  42. ASPIRIN (E.C.) [Concomitant]
     Active Substance: ASPIRIN
  43. MORPHINE [Concomitant]
     Active Substance: MORPHINE
  44. CEFTRIAXONE. [Concomitant]
     Active Substance: CEFTRIAXONE
  45. NITROSTAT [Concomitant]
     Active Substance: NITROGLYCERIN
  46. PHOSPHADEN [ADENOSINE PHOSPHATE] [Concomitant]
  47. PROAIR HFA [Concomitant]
     Active Substance: ALBUTEROL SULFATE
  48. BENZONATATE. [Concomitant]
     Active Substance: BENZONATATE
  49. ECOTRIN [Concomitant]
     Active Substance: ASPIRIN
  50. NORVIR [Concomitant]
     Active Substance: RITONAVIR

REACTIONS (12)
  - Tibia fracture [Not Recovered/Not Resolved]
  - Osteonecrosis [Not Recovered/Not Resolved]
  - Economic problem [Unknown]
  - Chronic kidney disease [Unknown]
  - Spinal operation [Unknown]
  - Fibula fracture [Not Recovered/Not Resolved]
  - Pain [Unknown]
  - Anhedonia [Unknown]
  - Osteoporosis [Unknown]
  - Tooth extraction [Recovered/Resolved]
  - Emotional distress [Unknown]
  - Anxiety [Unknown]

NARRATIVE: CASE EVENT DATE: 20101221
